FAERS Safety Report 4939114-6 (Version None)
Quarter: 2006Q1

REPORT INFORMATION
  Report Type: 
  Country: None (occurrence: None)
  Receive Date: 20060306
  Receipt Date: 20060222
  Transmission Date: 20060701
  Serious: Yes (Hospitalization)
  Sender: FDA-Public Use
  Company Number: MEDI-0004218

PATIENT
  Sex: Male

DRUGS (4)
  1. ETHYOL [Suspect]
     Indication: CHEMOTHERAPY
     Dosage: SUBCUTANEOUS
     Route: 058
  2. ETHYOL [Suspect]
     Indication: RADIOTHERAPY
     Dosage: SUBCUTANEOUS
     Route: 058
  3. UNSPECIFIED CHEMOTHERAPEUTIC AGENT [Concomitant]
  4. RADIATION THERAPY [Concomitant]

REACTIONS (4)
  - INJECTION SITE ERYTHEMA [None]
  - ODYNOPHAGIA [None]
  - PYREXIA [None]
  - RASH [None]
